FAERS Safety Report 12458196 (Version 1)
Quarter: 2016Q2

REPORT INFORMATION
  Report Type: Spontaneous
  Country: US (occurrence: US)
  Receive Date: 20160613
  Receipt Date: 20160613
  Transmission Date: 20160815
  Serious: Yes (Life-Threatening, Other)
  Sender: FDA-Public Use
  Company Number: US-CIPLA LTD.-2016US06531

PATIENT

DRUGS (8)
  1. WARFARIN SODIUM. [Suspect]
     Active Substance: WARFARIN SODIUM
     Dosage: 8 MG, UNK
     Route: 065
  2. CO-(210) [Concomitant]
     Dosage: 100 MG, UNK
     Route: 065
  3. FERROUS SULFATE (IRON PILLS) [Concomitant]
     Dosage: UNK
     Route: 065
  4. WARFARIN SODIUM. [Suspect]
     Active Substance: WARFARIN SODIUM
     Dosage: 10 MG, FOR 5 DAYS AND 8 MG FOR 2 DAYS
     Route: 048
  5. WARFARIN SODIUM. [Suspect]
     Active Substance: WARFARIN SODIUM
     Dosage: 8 MG, (5 MG AND 3MG)
     Route: 048
     Dates: start: 20160407
  6. WARFARIN SODIUM. [Suspect]
     Active Substance: WARFARIN SODIUM
     Dosage: 10 MG, ONE DAY AND 8 MG (ONE 5 MG AND ONE 3MG TABLET) SIX DAYS
     Route: 048
  7. METOPROLOL TART [Concomitant]
     Active Substance: METOPROLOL TARTRATE
     Dosage: 25 MG, UNK
     Route: 065
  8. SIMVASTATIN. [Concomitant]
     Active Substance: SIMVASTATIN
     Dosage: 20 MG, UNK
     Route: 065

REACTIONS (3)
  - Product substitution issue [Unknown]
  - International normalised ratio decreased [Unknown]
  - Drug ineffective [Unknown]
